FAERS Safety Report 20674604 (Version 2)
Quarter: 2022Q2

REPORT INFORMATION
  Report Type: Spontaneous
  Country: FR (occurrence: FR)
  Receive Date: 20220405
  Receipt Date: 20220519
  Transmission Date: 20220721
  Serious: Yes (Hospitalization)
  Sender: FDA-Public Use
  Company Number: FR-JNJFOC-20220402161

PATIENT
  Age: 71 Year
  Sex: Male

DRUGS (1)
  1. HALDOL [Suspect]
     Active Substance: HALOPERIDOL
     Indication: Agitation
     Route: 058
     Dates: start: 20220330, end: 20220401

REACTIONS (3)
  - Living in residential institution [Unknown]
  - Incorrect route of product administration [Unknown]
  - Off label use [Unknown]
